FAERS Safety Report 11068452 (Version 1)
Quarter: 2015Q2

REPORT INFORMATION
  Report Type: Spontaneous
  Country: US (occurrence: None)
  Receive Date: 20150424
  Receipt Date: 20150424
  Transmission Date: 20150821
  Serious: Yes (Disabling)
  Sender: FDA-Public Use
  Company Number: None

PATIENT
  Age: 42 Year
  Sex: Male
  Weight: 64.41 kg

DRUGS (5)
  1. PROPECIA [Suspect]
     Active Substance: FINASTERIDE
     Indication: ALOPECIA
     Dosage: 1MG  ONCE DAILY TAKEN BY MOUTH
     Route: 048
     Dates: start: 20070601, end: 20141015
  2. CLOMID [Concomitant]
     Active Substance: CLOMIPHENE CITRATE
  3. CIALIS [Concomitant]
     Active Substance: TADALAFIL
  4. LAMICTAL [Concomitant]
     Active Substance: LAMOTRIGINE
  5. FISH OIL [Concomitant]
     Active Substance: FISH OIL

REACTIONS (1)
  - Sexual dysfunction [None]

NARRATIVE: CASE EVENT DATE: 20141015
